FAERS Safety Report 11240879 (Version 2)
Quarter: 2015Q3

REPORT INFORMATION
  Report Type: Spontaneous
  Country: US (occurrence: US)
  Receive Date: 20150706
  Receipt Date: 20150825
  Transmission Date: 20151125
  Serious: Yes (Death, Hospitalization, Other)
  Sender: FDA-Public Use
  Company Number: US-009507513-1507USA001136

PATIENT
  Sex: Female
  Weight: 63.49 kg

DRUGS (2)
  1. JANUVIA [Suspect]
     Active Substance: SITAGLIPTIN PHOSPHATE
     Dosage: 100 MG, BID
     Route: 048
  2. JANUVIA [Suspect]
     Active Substance: SITAGLIPTIN PHOSPHATE
     Indication: TYPE 2 DIABETES MELLITUS
     Dosage: 100 MG, QD
     Route: 048
     Dates: start: 20120924, end: 20130308

REACTIONS (22)
  - Metastases to liver [Unknown]
  - Adnexa uteri mass [Unknown]
  - Ulcer [Unknown]
  - Metastases to peritoneum [Unknown]
  - Oedema peripheral [Unknown]
  - Dyspnoea exertional [Unknown]
  - Inappropriate schedule of drug administration [Unknown]
  - Salpingo-oophorectomy unilateral [Unknown]
  - Polypectomy [Unknown]
  - Death [Fatal]
  - Oesophageal candidiasis [Unknown]
  - Laparotomy [Unknown]
  - Hyperkalaemia [Recovered/Resolved]
  - Dehydration [Unknown]
  - Deep vein thrombosis [Unknown]
  - Acute kidney injury [Unknown]
  - Pancreatic carcinoma metastatic [Unknown]
  - Metastases to lung [Unknown]
  - Ascites [Unknown]
  - Dehydration [Unknown]
  - Oophorectomy [Unknown]
  - Hypertension [Unknown]

NARRATIVE: CASE EVENT DATE: 20120906
